FAERS Safety Report 8245444-5 (Version None)
Quarter: 2012Q1

REPORT INFORMATION
  Report Type: 
  Country: None (occurrence: None)
  Receive Date: 20120329
  Receipt Date: 20120321
  Transmission Date: 20120608
  Serious: Yes (Hospitalization)
  Sender: FDA-Public Use
  Company Number: JP-MERCK-1203USA03082

PATIENT
  Age: 60 Year
  Sex: Male

DRUGS (4)
  1. DECADRON [Suspect]
     Indication: HORMONE THERAPY
     Route: 048
     Dates: start: 20090601
  2. NIFEDIPINE [Concomitant]
     Indication: HYPERTENSION
     Route: 048
  3. ESTRACYT [Concomitant]
     Indication: HORMONE THERAPY
     Route: 048
     Dates: start: 20081001
  4. INSULIN [Concomitant]
     Indication: DIABETES MELLITUS
     Route: 058

REACTIONS (3)
  - OEDEMA PERIPHERAL [None]
  - PROTEIN-LOSING GASTROENTEROPATHY [None]
  - HYPOPROTEINAEMIA [None]
